FAERS Safety Report 14196546 (Version 1)
Quarter: 2017Q4

REPORT INFORMATION
  Report Type: Spontaneous
  Country: US (occurrence: US)
  Receive Date: 20171116
  Receipt Date: 20171116
  Transmission Date: 20180321
  Serious: No
  Sender: FDA-Public Use
  Company Number: US-WARNER CHILCOTT-2017-000250

PATIENT
  Age: 80 Year
  Sex: Male

DRUGS (3)
  1. ENABLEX [Suspect]
     Active Substance: DARIFENACIN HYDROBROMIDE
     Indication: HYPERTONIC BLADDER
     Dosage: 15 MG, QD
     Route: 065
     Dates: start: 20161024, end: 201611
  2. ANTIHYPERTENSIVES [Concomitant]
     Active Substance: UNSPECIFIED INGREDIENT
     Indication: HYPERTENSION
     Dosage: UNK
  3. ENABLEX [Suspect]
     Active Substance: DARIFENACIN HYDROBROMIDE
     Dosage: 15 MG, QD
     Route: 065
     Dates: start: 2013

REACTIONS (3)
  - Dry mouth [Recovered/Resolved]
  - Drug ineffective [Not Recovered/Not Resolved]
  - Constipation [Recovered/Resolved]

NARRATIVE: CASE EVENT DATE: 2013
